FAERS Safety Report 9215917 (Version 1)
Quarter: 2013Q2

REPORT INFORMATION
  Report Type: Spontaneous
  Country: IT (occurrence: None)
  Receive Date: 20130403
  Receipt Date: 20130403
  Transmission Date: 20140414
  Serious: Yes (Other)
  Sender: FDA-Public Use
  Company Number: AUR-APL-2013-02622

PATIENT
  Age: 56 Year
  Sex: Male

DRUGS (3)
  1. AMOXICILLIN [Suspect]
     Indication: PHARYNGITIS
     Dosage: 1 DOSAGE FORMS, TOTAL, ORAL
     Route: 048
     Dates: start: 20121022, end: 20121022
  2. OKI (KETOPROFEN LYSINE) [Concomitant]
  3. KETOROLAC TROMETHAMINE (KETOROLAC) [Concomitant]

REACTIONS (5)
  - Hypersensitivity [None]
  - Generalised erythema [None]
  - Periorbital oedema [None]
  - Asphyxia [None]
  - Hypersensitivity [None]
